FAERS Safety Report 8571551-3 (Version None)
Quarter: 2012Q3

REPORT INFORMATION
  Report Type: 
  Country: None (occurrence: None)
  Receive Date: 20120806
  Receipt Date: 20120730
  Transmission Date: 20120928
  Serious: Yes (Other)
  Sender: FDA-Public Use
  Company Number: PHHY2012JP055786

PATIENT
  Age: 70 Year
  Sex: Male

DRUGS (1)
  1. ZOMETA [Suspect]
     Indication: METASTASES TO BONE
     Dosage: 4 MG/DOSE/MONTH X16
     Dates: start: 20090101, end: 20110510

REACTIONS (16)
  - PRIMARY SEQUESTRUM [None]
  - OSTEONECROSIS OF JAW [None]
  - FACIAL ASYMMETRY [None]
  - BONE SWELLING [None]
  - PARAESTHESIA [None]
  - PAIN [None]
  - LYMPHADENOPATHY [None]
  - IMPAIRED HEALING [None]
  - EXPOSED BONE IN JAW [None]
  - GINGIVAL INFECTION [None]
  - PERIODONTITIS [None]
  - HYPOAESTHESIA [None]
  - LYMPH NODE PAIN [None]
  - ERYTHEMA [None]
  - OSTEITIS [None]
  - SWELLING [None]
